FAERS Safety Report 6713799-6 (Version None)
Quarter: 2010Q2

REPORT INFORMATION
  Report Type: 
  Country: None (occurrence: None)
  Receive Date: 20100506
  Receipt Date: 20100504
  Transmission Date: 20101027
  Serious: Yes (Life-Threatening, Hospitalization)
  Sender: FDA-Public Use
  Company Number: GXKR2010DE04969

PATIENT
  Age: 59 Year
  Sex: Female
  Weight: 62 kg

DRUGS (6)
  1. BISOPRODOL FUMARATE [Interacting]
     Indication: HYPERTENSION
     Dosage: 5 MG, BID
     Route: 048
     Dates: start: 20091201
  2. SPIRONOLACTON (NGX) [Interacting]
     Indication: RENAL FAILURE CHRONIC
     Dosage: 50 MG, QD
     Route: 048
     Dates: start: 20100107, end: 20100221
  3. HYDROCHLOROTHIAZIDE [Suspect]
     Indication: HYPERTENSION
     Dosage: 25 MG, QD
     Route: 048
     Dates: start: 20091201, end: 20100221
  4. RAMIPRIL (NGX) [Suspect]
     Indication: HYPERTENSION
     Dosage: 2.5 MG, QD
     Route: 048
     Dates: start: 20091201, end: 20100221
  5. TORSEMIDE [Suspect]
     Indication: CARDIAC FAILURE CHRONIC
     Dosage: 5 MG, QD
     Route: 048
     Dates: start: 20100107, end: 20100221
  6. SIMVASTATIN [Concomitant]
     Indication: ISCHAEMIC HEART DISEASE PROPHYLAXIS
     Dosage: 20 MG, QD
     Route: 048
     Dates: start: 20091201

REACTIONS (1)
  - RENAL FAILURE ACUTE [None]
